FAERS Safety Report 25373927 (Version 1)
Quarter: 2025Q2

REPORT INFORMATION
  Report Type: Spontaneous
  Country: GB (occurrence: None)
  Receive Date: 20250528
  Receipt Date: 20250528
  Transmission Date: 20250717
  Serious: Yes (Other)
  Sender: FDA-CTU
  Company Number: None

PATIENT
  Age: 42 Year
  Sex: Female

DRUGS (1)
  1. CITALOPRAM [Suspect]
     Active Substance: CITALOPRAM
     Indication: Perinatal depression
     Dates: start: 20130418, end: 20231118

REACTIONS (18)
  - Electrocardiogram QT prolonged [None]
  - Agitation [None]
  - Drug withdrawal syndrome [None]
  - Suicidal ideation [None]
  - Panic attack [None]
  - Crying [None]
  - Tremor [None]
  - Depression [None]
  - Anxiety [None]
  - Gastrointestinal disorder [None]
  - Anger [None]
  - Diarrhoea [None]
  - Chest pain [None]
  - Chest discomfort [None]
  - Insomnia [None]
  - Decreased appetite [None]
  - Mental disorder [None]
  - Heart rate increased [None]

NARRATIVE: CASE EVENT DATE: 20231118
